FAERS Safety Report 7759981 (Version 8)
Quarter: 2012Q4

REPORT INFORMATION
  Report Type: 
  Country: US (occurrence: US)
  Receive Date: 20110113
  Receipt Date: 20121221
  Transmission Date: 20130627
  Serious: Yes (Hospitalization, Other)
  Sender: FDA-Public Use
  Company Number: US-009507513-1101USA01044

PATIENT

DRUGS (6)
  1. FOSAMAX [Suspect]
     Indication: OSTEOPOROSIS
     Dosage: 10 mg, qd
     Route: 048
     Dates: start: 19951129, end: 199812
  2. FOSAMAX [Suspect]
     Indication: OSTEOPENIA
     Dosage: 10 mg, qd
     Route: 048
     Dates: start: 19990628, end: 200211
  3. FOSAMAX [Suspect]
     Dosage: 70 mg, QW
     Route: 048
     Dates: start: 20010330, end: 20081222
  4. FOSAMAX [Suspect]
     Indication: OSTEOPOROSIS
     Dosage: 70 mg, QW
     Route: 048
     Dates: start: 20090509, end: 20100930
  5. ALENDRONATE SODIUM [Suspect]
     Indication: OSTEOPOROSIS
     Dosage: 70 UNK, UNK
     Dates: start: 20081212
  6. MK-9278 [Concomitant]
     Dosage: UNK UNK, qd
     Dates: start: 1995

REACTIONS (36)
  - Femur fracture [Unknown]
  - Intramedullary rod insertion [Unknown]
  - Anaemia postoperative [Recovered/Resolved]
  - Deafness [Unknown]
  - Arthropathy [Unknown]
  - Low turnover osteopathy [Unknown]
  - Hypercholesterolaemia [Unknown]
  - Tinnitus [Not Recovered/Not Resolved]
  - Haemorrhoids [Unknown]
  - Blood pressure inadequately controlled [Unknown]
  - Psoriasis [Unknown]
  - Injury [Unknown]
  - Hypothyroidism [Unknown]
  - Bacterial infection [Unknown]
  - Fungal infection [Unknown]
  - Laceration [Unknown]
  - Cellulitis [Unknown]
  - Osteoarthritis [Unknown]
  - Stasis dermatitis [Unknown]
  - Varicose vein [Unknown]
  - Hypertension [Unknown]
  - Urge incontinence [Unknown]
  - Depression [Unknown]
  - Family stress [Unknown]
  - Coronary artery disease [Unknown]
  - Nocturia [Unknown]
  - Blood glucose increased [Unknown]
  - Temperature intolerance [Unknown]
  - Sciatica [Unknown]
  - Tonsillectomy [Unknown]
  - Gastrooesophageal reflux disease [Unknown]
  - Arthralgia [Unknown]
  - Back pain [Unknown]
  - Pruritus [Unknown]
  - Oedema peripheral [Unknown]
  - Vertigo [Unknown]
